FAERS Safety Report 4352543-7 (Version None)
Quarter: 2004Q2

REPORT INFORMATION
  Report Type: 
  Country: None (occurrence: None)
  Receive Date: 20040428
  Receipt Date: 20040415
  Transmission Date: 20050107
  Serious: Yes (Life-Threatening)
  Sender: FDA-Public Use
  Company Number: 2004022403

PATIENT
  Age: 40 Year
  Sex: Female

DRUGS (8)
  1. ATARAX [Suspect]
     Indication: SUICIDE ATTEMPT
     Dosage: ORAL
     Route: 048
  2. LITHIUM CARBONATE [Suspect]
     Indication: SUICIDE ATTEMPT
     Dosage: ORAL
     Route: 048
  3. ALPRAZOLAM [Suspect]
     Indication: SUICIDE ATTEMPT
     Dosage: ORAL
     Route: 048
  4. TRAZODONE HCL [Suspect]
     Indication: SUICIDE ATTEMPT
     Dosage: ORAL
     Route: 048
  5. CLOMIPRAMINE HCL [Suspect]
     Indication: SUICIDE ATTEMPT
     Dosage: ORAL
     Route: 048
  6. MILNACIPRAN (MILNACIPRAN) [Suspect]
     Indication: SUICIDE ATTEMPT
     Dosage: ORAL
     Route: 048
  7. TRICYCLIC ANTIDEPRESSANTS (TRICYCLIC ANTIDEPRESSANTS) [Concomitant]
  8. BENZODIAZEPINE DERIVATIVES (BENZODIAZEPINE DERIVATIVES) [Concomitant]

REACTIONS (4)
  - HAEMODIALYSIS [None]
  - HALLUCINATION [None]
  - PARANOIA [None]
  - THERAPEUTIC AGENT TOXICITY [None]
